FAERS Safety Report 14608363 (Version 1)
Quarter: 2018Q1

REPORT INFORMATION
  Report Type: Spontaneous
  Country: US (occurrence: US)
  Receive Date: 20180307
  Receipt Date: 20180307
  Transmission Date: 20180509
  Serious: Yes (Hospitalization, Other)
  Sender: FDA-Public Use
  Company Number: US-PFIZER INC-2018091800

PATIENT
  Age: 82 Year
  Sex: Female
  Weight: 54 kg

DRUGS (1)
  1. PANTOPRAZOLE [Suspect]
     Active Substance: PANTOPRAZOLE
     Indication: GASTROINTESTINAL DISORDER
     Dosage: 40 MG, 1X/DAY
     Route: 048

REACTIONS (1)
  - Ulcer haemorrhage [Not Recovered/Not Resolved]

NARRATIVE: CASE EVENT DATE: 20161231
